FAERS Safety Report 4886028-6 (Version None)
Quarter: 2006Q1

REPORT INFORMATION
  Report Type: 
  Country: None (occurrence: None)
  Receive Date: 20060118
  Receipt Date: 20060118
  Transmission Date: 20060701
  Serious: No
  Sender: FDA-Public Use
  Company Number: None

PATIENT
  Age: 72 Year
  Sex: Male

DRUGS (1)
  1. AMIKACIN [Suspect]
     Indication: URINARY TRACT INFECTION
     Dosage: 500 MG DAILY IV
     Route: 042
     Dates: start: 20060112, end: 20060115

REACTIONS (3)
  - DIZZINESS [None]
  - OTOTOXICITY [None]
  - VESTIBULAR DISORDER [None]
